FAERS Safety Report 9332355 (Version 1)
Quarter: 2013Q2

REPORT INFORMATION
  Report Type: Spontaneous
  Country: IL (occurrence: IL)
  Receive Date: 20130606
  Receipt Date: 20130606
  Transmission Date: 20140414
  Serious: Yes (Hospitalization, Other)
  Sender: FDA-Public Use
  Company Number: PHHY2013IL054778

PATIENT
  Age: 74 Year
  Sex: Female

DRUGS (2)
  1. SANDOSTATIN LAR [Suspect]
     Indication: PANCREATIC NEUROENDOCRINE TUMOUR
     Dosage: 30 MG, UNK
  2. AFINITOR [Suspect]
     Indication: PANCREATIC NEUROENDOCRINE TUMOUR
     Dosage: 10 MG, UNK

REACTIONS (5)
  - Pulmonary haemorrhage [Unknown]
  - Pneumonia [Unknown]
  - Dyspnoea [Unknown]
  - Plasma cell myeloma [Unknown]
  - Second primary malignancy [Unknown]
